FAERS Safety Report 25185403 (Version 1)
Quarter: 2025Q2

REPORT INFORMATION
  Report Type: Spontaneous
  Country: US (occurrence: None)
  Receive Date: 20250410
  Receipt Date: 20250410
  Transmission Date: 20250717
  Serious: Yes (unspecified)
  Sender: FDA-CTU
  Company Number: None

PATIENT
  Age: 34 Year
  Sex: Male

DRUGS (2)
  1. VIVITROL [Suspect]
     Active Substance: NALTREXONE
  2. VIVITROL [Concomitant]
     Active Substance: NALTREXONE
     Dates: start: 20250312

REACTIONS (1)
  - Injection site mass [None]

NARRATIVE: CASE EVENT DATE: 20250312
